FAERS Safety Report 17363869 (Version 2)
Quarter: 2020Q2

REPORT INFORMATION
  Report Type: Spontaneous
  Country: US (occurrence: US)
  Receive Date: 20200203
  Receipt Date: 20200526
  Transmission Date: 20200713
  Serious: Yes (Death, Hospitalization, Other)
  Sender: FDA-Public Use
  Company Number: US-009507513-2001USA011029

PATIENT
  Sex: Male
  Weight: 88.89 kg

DRUGS (18)
  1. LEVOTHYROXINE SODIUM. [Concomitant]
     Active Substance: LEVOTHYROXINE SODIUM
     Indication: HYPERTHYROIDISM
     Dosage: 1 TABLET, EVERY DAY
     Route: 048
     Dates: start: 20080325, end: 20181107
  2. JANUMET [Suspect]
     Active Substance: METFORMIN HYDROCHLORIDE\SITAGLIPTIN PHOSPHATE
     Dosage: 1 TABLET TWICE A DAY
     Route: 048
     Dates: end: 20190104
  3. VICTOZA [Suspect]
     Active Substance: LIRAGLUTIDE
     Dosage: 1.2 MILLIGRAM, INJECTION ONCE DAILY
  4. CRESTOR [Concomitant]
     Active Substance: ROSUVASTATIN CALCIUM
     Indication: BLOOD CHOLESTEROL
     Dosage: UNK
     Dates: start: 20100312, end: 20110508
  5. VICTOZA [Suspect]
     Active Substance: LIRAGLUTIDE
     Dosage: 0.6 MILLIGRAM, INJECTIONS ONCE DAILY
     Dates: start: 20171228
  6. AMLODIPINE BESYLATE. [Concomitant]
     Active Substance: AMLODIPINE BESYLATE
     Indication: HYPERTENSION
     Dosage: UNK
     Dates: start: 20100111, end: 20181108
  7. JANUMET [Suspect]
     Active Substance: METFORMIN HYDROCHLORIDE\SITAGLIPTIN PHOSPHATE
     Dosage: 1 TABLET, TWICE A DAY
     Route: 048
     Dates: start: 20140528, end: 20170616
  8. JANUMET [Suspect]
     Active Substance: METFORMIN HYDROCHLORIDE\SITAGLIPTIN PHOSPHATE
     Dosage: 1 TABLET, TWICE A DAY
     Route: 048
     Dates: start: 20180610, end: 20181231
  9. HYDROCHLOROTHIAZIDE. [Concomitant]
     Active Substance: HYDROCHLOROTHIAZIDE
     Indication: FLUID RETENTION
  10. TEGRETOL [Concomitant]
     Active Substance: CARBAMAZEPINE
     Indication: SEIZURE
     Dosage: 1 TABLET, FOUR TIMES A DAY
     Route: 048
  11. VICTOZA [Suspect]
     Active Substance: LIRAGLUTIDE
     Dosage: 1.8 MILLIGRAM, INJECTION ONCE DAILY
     Dates: end: 20181005
  12. CARBAMAZEPINE. [Concomitant]
     Active Substance: CARBAMAZEPINE
     Indication: SEIZURE
     Dosage: 2 TABLET, 3 TIMES A DAY
     Route: 048
     Dates: start: 20091214, end: 20170818
  13. DIOVAN HCT [Concomitant]
     Active Substance: HYDROCHLOROTHIAZIDE\VALSARTAN
     Indication: HYPERTENSION
     Dosage: UNK
     Dates: start: 20101211, end: 20120101
  14. PROMETHAZINE HYDROCHLORIDE. [Concomitant]
     Active Substance: PROMETHAZINE HYDROCHLORIDE
     Indication: SEIZURE
     Dosage: UNK
     Dates: start: 20100628, end: 20150322
  15. JANUMET [Suspect]
     Active Substance: METFORMIN HYDROCHLORIDE\SITAGLIPTIN PHOSPHATE
     Dosage: 50 - 500 MILLIGRAM DAILY, QUANTITY 30
     Route: 048
     Dates: start: 20110814, end: 20140617
  16. VICTOZA [Suspect]
     Active Substance: LIRAGLUTIDE
     Dosage: 1.8 MILLIGRAM, INJECTION ONCE DAILY
     Dates: end: 20190104
  17. HYDROCHLOROTHIAZIDE. [Concomitant]
     Active Substance: HYDROCHLOROTHIAZIDE
     Indication: HYPERTENSION
     Dosage: UNK
     Dates: start: 20091215, end: 20120424
  18. METOPROLOL. [Concomitant]
     Active Substance: METOPROLOL
     Indication: HYPERTENSION
     Dosage: UNK
     Dates: start: 20100211, end: 20130323

REACTIONS (29)
  - Bladder operation [Unknown]
  - Weight decreased [Unknown]
  - Cerebral infarction [Unknown]
  - Arthritis [Unknown]
  - Pleural effusion [Unknown]
  - Anxiety [Unknown]
  - Coagulation time prolonged [Unknown]
  - Cardiomegaly [Unknown]
  - Pelvic fluid collection [Unknown]
  - Pulmonary arterial hypertension [Unknown]
  - Coronary arterial stent insertion [Unknown]
  - Anaemia [Unknown]
  - Infection [Unknown]
  - Inappropriate schedule of product administration [Unknown]
  - Pneumonia [Unknown]
  - Metabolic acidosis [Unknown]
  - Malnutrition [Unknown]
  - Carpal tunnel syndrome [Unknown]
  - Diverticulum intestinal [Unknown]
  - Atelectasis [Unknown]
  - Bronchitis [Unknown]
  - Encephalopathy [Unknown]
  - Metastases to liver [Unknown]
  - Cardiac operation [Unknown]
  - Cyst [Unknown]
  - Pancreatic carcinoma metastatic [Fatal]
  - Subdural haematoma [Unknown]
  - Emotional disorder [Unknown]
  - Depression [Unknown]

NARRATIVE: CASE EVENT DATE: 20110814
